FAERS Safety Report 9844113 (Version 3)
Quarter: 2014Q1

REPORT INFORMATION
  Report Type: Spontaneous
  Country: DE (occurrence: DE)
  Receive Date: 20140127
  Receipt Date: 20140203
  Transmission Date: 20141002
  Serious: Yes (Hospitalization, Disabling)
  Sender: FDA-Public Use
  Company Number: DE-ROCHE-1324503

PATIENT
  Age: 62 Year
  Sex: Female
  Weight: 73.6 kg

DRUGS (2)
  1. KADCYLA [Suspect]
     Indication: BREAST CANCER METASTATIC
     Route: 042
     Dates: start: 20131218, end: 20131218
  2. BISOPROLOL [Concomitant]
     Indication: HYPERTENSION
     Route: 048

REACTIONS (5)
  - Chills [Unknown]
  - Pyrexia [Unknown]
  - Hypersensitivity [Unknown]
  - Hepatorenal syndrome [Unknown]
  - Renal failure [Not Recovered/Not Resolved]
